FAERS Safety Report 10094696 (Version 1)
Quarter: 2014Q2

REPORT INFORMATION
  Report Type: Spontaneous
  Country: US (occurrence: US)
  Receive Date: 20140422
  Receipt Date: 20140422
  Transmission Date: 20141212
  Serious: Yes (Hospitalization)
  Sender: FDA-Public Use
  Company Number: US-ASTRAZENECA-2014SE25909

PATIENT
  Age: 65 Year
  Sex: Male

DRUGS (2)
  1. BRILINTA [Suspect]
     Indication: THROMBOSIS IN DEVICE
     Route: 048
     Dates: start: 201404
  2. PLAVIX [Concomitant]

REACTIONS (2)
  - Thrombosis in device [Unknown]
  - Off label use [Unknown]
